FAERS Safety Report 6558788-X (Version None)
Quarter: 2010Q1

REPORT INFORMATION
  Report Type: 
  Country: None (occurrence: None)
  Receive Date: 20100129
  Receipt Date: 20100119
  Transmission Date: 20100710
  Serious: Yes (Death, Life-Threatening, Hospitalization, Disabling, Other)
  Sender: FDA-Public Use
  Company Number: GB-WATSON-2010-00806

PATIENT
  Age: 61 Year
  Sex: Male

DRUGS (7)
  1. TOPIRAMATE [Suspect]
     Indication: CONVULSION
     Dosage: 25 MG, UNKNOWN
     Route: 048
     Dates: start: 20071001
  2. TOPIRAMATE [Suspect]
     Dosage: 50 MG, UNKNOWN
     Route: 048
     Dates: start: 20071001
  3. TEMODAL [Suspect]
     Indication: GLIOBLASTOMA MULTIFORME
     Dosage: 75 MG/M2, DAILY
     Route: 048
     Dates: start: 20071001, end: 20071109
  4. ALLOPURINOL [Concomitant]
     Indication: GOUT
     Dosage: UNK
  5. DEXAMETHASONE [Concomitant]
     Indication: DRUG USE FOR UNKNOWN INDICATION
     Dosage: UNK
     Dates: start: 20070901
  6. FILGRASTIM [Concomitant]
     Indication: DRUG USE FOR UNKNOWN INDICATION
     Dosage: UNK
     Dates: start: 20071101
  7. LANSOPRAZOLE [Concomitant]
     Indication: DRUG USE FOR UNKNOWN INDICATION
     Dosage: UNK

REACTIONS (5)
  - BONE MARROW FAILURE [None]
  - FEBRILE NEUTROPENIA [None]
  - HAEMORRHAGE [None]
  - PANCYTOPENIA [None]
  - PETECHIAE [None]
